FAERS Safety Report 9626240 (Version 7)
Quarter: 2014Q4

REPORT INFORMATION
  Report Type: Spontaneous
  Country: US (occurrence: US)
  Receive Date: 20131016
  Receipt Date: 20141117
  Transmission Date: 20150529
  Serious: Yes (Hospitalization, Other)
  Sender: FDA-Public Use
  Company Number: US-009507513-1203USA01689

PATIENT
  Sex: Female

DRUGS (5)
  1. ENBREL [Concomitant]
     Active Substance: ETANERCEPT
     Indication: RHEUMATOID ARTHRITIS
     Dosage: UNK UNK,
     Dates: start: 2000
  2. FOSAMAX [Suspect]
     Active Substance: ALENDRONATE SODIUM
     Indication: PROPHYLAXIS
     Dosage: 70 MG, QW
     Route: 048
     Dates: start: 2000, end: 2007
  3. MAGNESIUM (UNSPECIFIED) [Concomitant]
     Active Substance: MAGNESIUM
     Dosage: 200 MG, UNK
     Dates: start: 2000
  4. FOSAMAX [Suspect]
     Active Substance: ALENDRONATE SODIUM
     Indication: RHEUMATOID ARTHRITIS
     Dosage: 70 MG, QW
     Route: 048
     Dates: end: 2010
  5. CALCIUM (UNSPECIFIED) (+) VITAMIN D (UNSPECIFIED) [Concomitant]
     Active Substance: CALCIUM CARBONATE\VITAMIN D
     Dosage: 400 MG, UNK
     Dates: start: 2000

REACTIONS (28)
  - Knee arthroplasty [Unknown]
  - Synovitis [Unknown]
  - Osteoarthritis [Unknown]
  - Osteoarthritis [Unknown]
  - Dizziness [Unknown]
  - Arthritis [Unknown]
  - Arthritis [Unknown]
  - Off label use [Unknown]
  - Knee arthroplasty [Unknown]
  - Meniscus injury [Unknown]
  - Insomnia [Unknown]
  - Femur fracture [Recovered/Resolved]
  - Synovectomy [Unknown]
  - Exostosis [Unknown]
  - Joint effusion [Unknown]
  - Menstruation irregular [Unknown]
  - Fibula fracture [Unknown]
  - Tarsal tunnel decompression [Unknown]
  - Osteopenia [Unknown]
  - Osteoarthritis [Unknown]
  - Arthralgia [Unknown]
  - Bone loss [Unknown]
  - Arthritis [Unknown]
  - Gastrooesophageal reflux disease [Unknown]
  - Femur fracture [Unknown]
  - Device failure [Unknown]
  - Ankle fracture [Unknown]
  - Osteoarthritis [Unknown]

NARRATIVE: CASE EVENT DATE: 2000
